FAERS Safety Report 4758811-9 (Version None)
Quarter: 2005Q3

REPORT INFORMATION
  Report Type: 
  Country: None (occurrence: None)
  Receive Date: 20050901
  Receipt Date: 20050824
  Transmission Date: 20060218
  Serious: Yes (Death, Other)
  Sender: FDA-Public Use
  Company Number: FR-BRISTOL-MYERS SQUIBB COMPANY-13096631

PATIENT
  Age: 54 Year
  Sex: Female

DRUGS (10)
  1. ENDOXAN [Suspect]
     Indication: NON-HODGKIN'S LYMPHOMA
     Dates: start: 20050629, end: 20050629
  2. DOXORUBICIN [Suspect]
     Indication: NON-HODGKIN'S LYMPHOMA
  3. VINDESINE [Suspect]
     Indication: NON-HODGKIN'S LYMPHOMA
     Dates: start: 20050129
  4. ONCOVIN [Suspect]
     Indication: NON-HODGKIN'S LYMPHOMA
  5. PREDNISONE TAB [Suspect]
     Indication: NON-HODGKIN'S LYMPHOMA
  6. GLEEVEC [Suspect]
     Indication: NON-HODGKIN'S LYMPHOMA
     Dates: start: 20050628
  7. GLUCOR [Concomitant]
  8. GLUCOPHAGE [Concomitant]
  9. GLYBURIDE [Concomitant]
  10. ALLOPURINOL [Concomitant]
     Dates: start: 20030324

REACTIONS (4)
  - ANURIA [None]
  - MALIGNANT NEOPLASM PROGRESSION [None]
  - NEUTROPENIA [None]
  - PANCYTOPENIA [None]
